FAERS Safety Report 4509137-X (Version None)
Quarter: 2004Q4

REPORT INFORMATION
  Report Type: 
  Country: None (occurrence: None)
  Receive Date: 20041025
  Receipt Date: 20030904
  Transmission Date: 20050328
  Serious: Yes (Hospitalization)
  Sender: FDA-Public Use
  Company Number: NSADSS2003016355

PATIENT
  Age: 68 Year
  Sex: Female
  Weight: 60.782 kg

DRUGS (14)
  1. REMICADE [Suspect]
     Indication: PSORIATIC ARTHROPATHY
     Dosage: SEE IMAGE
     Route: 041
     Dates: start: 20010101, end: 20010101
  2. REMICADE [Suspect]
     Indication: PSORIATIC ARTHROPATHY
     Dosage: SEE IMAGE
     Route: 041
     Dates: start: 20030210, end: 20030210
  3. REMICADE [Suspect]
     Indication: PSORIATIC ARTHROPATHY
     Dosage: SEE IMAGE
     Route: 041
     Dates: start: 20030409, end: 20030409
  4. CLONAZEPAM [Concomitant]
  5. PRILOSEC [Concomitant]
  6. PREMARIN [Concomitant]
  7. PROZAC [Concomitant]
  8. CELEBREX [Concomitant]
  9. LIPITOR [Concomitant]
  10. FOLIC ACID [Concomitant]
  11. NORVASC [Concomitant]
  12. MAXZIDE [Concomitant]
  13. AMBIEN [Concomitant]
  14. ACETYLSALICYLIC ACID SRT [Concomitant]

REACTIONS (1)
  - PNEUMONIA [None]
